FAERS Safety Report 15279755 (Version 2)
Quarter: 2018Q4

REPORT INFORMATION
  Report Type: Spontaneous
  Country: DE (occurrence: DE)
  Receive Date: 20180815
  Receipt Date: 20181024
  Transmission Date: 20190204
  Serious: Yes (Other)
  Sender: FDA-Public Use
  Company Number: DE-AMGEN-DEUSP2018110594

PATIENT
  Age: 58 Year
  Sex: Female
  Weight: 65 kg

DRUGS (2)
  1. PROLIA [Suspect]
     Active Substance: DENOSUMAB
     Indication: OSTEOPOROSIS POSTMENOPAUSAL
  2. PROLIA [Suspect]
     Active Substance: DENOSUMAB
     Indication: OSTEOPOROSIS
     Dosage: 60 MG, UNK
     Route: 058
     Dates: start: 201807

REACTIONS (8)
  - Myalgia [Not Recovered/Not Resolved]
  - Drug intolerance [Unknown]
  - Arthralgia [Not Recovered/Not Resolved]
  - Osteitis [Recovered/Resolved]
  - Alopecia [Not Recovered/Not Resolved]
  - Tooth extraction [Unknown]
  - Infection susceptibility increased [Not Recovered/Not Resolved]
  - Cystitis [Unknown]

NARRATIVE: CASE EVENT DATE: 2018
